FAERS Safety Report 24433007 (Version 2)
Quarter: 2024Q4

REPORT INFORMATION
  Report Type: Spontaneous
  Country: IE (occurrence: IE)
  Receive Date: 20241014
  Receipt Date: 20241119
  Transmission Date: 20250115
  Serious: Yes (Hospitalization)
  Sender: MYLAN
  Company Number: IE-MYLANLABS-2024M1092054

PATIENT
  Sex: Male

DRUGS (3)
  1. CLOZARIL [Suspect]
     Active Substance: CLOZAPINE
     Indication: Schizophrenia
     Dosage: UNK (STOP DATE: AROUND 05-OCT-2024)
     Route: 048
     Dates: start: 20150413, end: 202410
  2. CLOZARIL [Suspect]
     Active Substance: CLOZAPINE
     Dosage: 25 MILLIGRAM
     Route: 048
     Dates: start: 20241008
  3. CLOZARIL [Suspect]
     Active Substance: CLOZAPINE
     Dosage: UNK (DOSAGE INCREASED)
     Route: 065

REACTIONS (1)
  - Schizophrenia [Recovered/Resolved]
